FAERS Safety Report 9156404 (Version 1)
Quarter: 2013Q1

REPORT INFORMATION
  Report Type: Spontaneous
  Country: US (occurrence: None)
  Receive Date: 20130308
  Receipt Date: 20130308
  Transmission Date: 20140127
  Serious: Yes (Disabling)
  Sender: FDA-Public Use
  Company Number: None

PATIENT
  Age: 91 Year
  Sex: Female
  Weight: 49.44 kg

DRUGS (11)
  1. PROLIA [Suspect]
     Indication: OSTEOPOROSIS
     Dosage: 60 MG  ONCE SQ
     Route: 058
     Dates: start: 20121218, end: 20131218
  2. MICARDIS [Concomitant]
  3. SPIRONOLACTONE [Concomitant]
  4. LEVOTHYROXINE [Concomitant]
  5. CYANCOBALAMIN [Concomitant]
  6. ASPIRIN 81 MG [Concomitant]
  7. CALCIUM-VITAMIN D [Concomitant]
  8. LATANOPROST [Concomitant]
  9. SODIUM CHLORIDE -MURO-128- 5% OINTMENT [Concomitant]
  10. PREDNISOLONE ACETATE -PRED FORTE- [Concomitant]
  11. TRAVOPROST [Concomitant]

REACTIONS (2)
  - Ulcerative keratitis [None]
  - Corneal transplant [None]
